FAERS Safety Report 8771775 (Version 1)
Quarter: 2012Q4

REPORT INFORMATION
  Report Type: 
  Country: DE (occurrence: DE)
  Receive Date: 20120831
  Receipt Date: 20120831
  Transmission Date: 20130627
  Serious: Yes (Hospitalization, Other)
  Sender: FDA-Public Use
  Company Number: DE-ELI_LILLY_AND_COMPANY-DE201208008639

PATIENT
  Age: 69 Year
  Sex: Female

DRUGS (3)
  1. FORSTEO [Suspect]
     Indication: OSTEOPOROSIS
     Dosage: UNK
     Route: 058
     Dates: start: 20111114
  2. MARCUMAR [Concomitant]
  3. MORPHINE                           /00036301/ [Concomitant]
     Dosage: 60 mg, qid

REACTIONS (5)
  - Loss of consciousness [Recovered/Resolved]
  - Inflammation of wound [Unknown]
  - Surgery [Recovered/Resolved]
  - Back pain [Unknown]
  - Fall [Recovered/Resolved]
